FAERS Safety Report 9318483 (Version 4)
Quarter: 2013Q4

REPORT INFORMATION
  Report Type: Spontaneous
  Country: GB (occurrence: None)
  Receive Date: 20130523
  Receipt Date: 20131203
  Transmission Date: 20140711
  Serious: Yes (Other)
  Sender: FDA-Public Use
  Company Number: KAD201305-000580

PATIENT
  Age: 51 Year
  Sex: Female

DRUGS (4)
  1. RIBAVIRIN (RIBAVIRIN) [Suspect]
     Indication: HEPATITIS C
     Route: 048
     Dates: start: 20120721
  2. PEGINTERFERON ALFA-2B [Suspect]
     Indication: HEPATITIS C
     Route: 058
     Dates: start: 20120721
  3. TELAPREVIR (TELAPREVIR) [Suspect]
     Indication: HEPATITIS C
     Route: 048
     Dates: start: 20120721, end: 20121014
  4. INTERFERON ALFA-2A [Suspect]
     Indication: HEPATITIS C
     Route: 058
     Dates: start: 20120721

REACTIONS (20)
  - Skin irritation [None]
  - Pruritus [None]
  - Amnesia [None]
  - Dry mouth [None]
  - Dry skin [None]
  - Thirst [None]
  - Fatigue [None]
  - Influenza like illness [None]
  - Gastrointestinal disorder [None]
  - Disturbance in attention [None]
  - Dyspepsia [None]
  - Diarrhoea [None]
  - Nausea [None]
  - Gastrooesophageal reflux disease [None]
  - Hallucination, olfactory [None]
  - Rectal haemorrhage [None]
  - Swelling face [None]
  - Local swelling [None]
  - Pruritus [None]
  - Skin papilloma [None]
